FAERS Safety Report 8464521-7 (Version None)
Quarter: 2012Q2

REPORT INFORMATION
  Report Type: 
  Country: None (occurrence: None)
  Receive Date: 20120620
  Receipt Date: 20120620
  Transmission Date: 20120825
  Serious: Yes (Hospitalization)
  Sender: FDA-Public Use
  Company Number: None

PATIENT
  Sex: Female
  Weight: 54.4316 kg

DRUGS (1)
  1. ETODOLAC [Suspect]
     Indication: BACK PAIN
     Dosage: 300 MG TWICE DAILY BY MOUTH
     Route: 048

REACTIONS (12)
  - MALAISE [None]
  - VOMITING PROJECTILE [None]
  - BACK PAIN [None]
  - ASTHENIA [None]
  - HOT FLUSH [None]
  - DIARRHOEA [None]
  - NERVOUS SYSTEM DISORDER [None]
  - HEADACHE [None]
  - FRUSTRATION [None]
  - CONDITION AGGRAVATED [None]
  - DRUG INTERACTION [None]
  - ACTIVITIES OF DAILY LIVING IMPAIRED [None]
